FAERS Safety Report 12860627 (Version 1)
Quarter: 2016Q4

REPORT INFORMATION
  Report Type: Spontaneous
  Country: US (occurrence: US)
  Receive Date: 20161019
  Receipt Date: 20161019
  Transmission Date: 20170207
  Serious: No
  Sender: FDA-Public Use
  Company Number: US-BAYER-2016-197482

PATIENT
  Age: 67 Year
  Sex: Male
  Weight: 70.3 kg

DRUGS (1)
  1. MIRALAX [Suspect]
     Active Substance: POLYETHYLENE GLYCOL 3350
     Indication: CONSTIPATION
     Dosage: 1 DF, BID
     Route: 048
     Dates: start: 20161001, end: 20161009

REACTIONS (2)
  - Faeces discoloured [Unknown]
  - Product use issue [Unknown]

NARRATIVE: CASE EVENT DATE: 20161011
